FAERS Safety Report 12299981 (Version 3)
Quarter: 2016Q3

REPORT INFORMATION
  Report Type: Spontaneous
  Country: US (occurrence: US)
  Receive Date: 20160425
  Receipt Date: 20160721
  Transmission Date: 20161109
  Serious: Yes (Other)
  Sender: FDA-Public Use
  Company Number: US-ACTAVIS-2016-08275

PATIENT
  Age: 60 Year
  Sex: Female

DRUGS (8)
  1. AVASTIN [Concomitant]
     Active Substance: BEVACIZUMAB
     Indication: COLORECTAL CANCER METASTATIC
     Dosage: UNK, 1/TWO WEEKS
     Route: 042
     Dates: start: 201012
  2. ELOXATIN [Suspect]
     Active Substance: OXALIPLATIN
     Indication: COLORECTAL CANCER METASTATIC
     Dosage: FOLFOX, 1/TWO WEEKS
     Route: 042
     Dates: start: 201012
  3. 5-FLUOROURACIL                     /00098801/ [Concomitant]
     Active Substance: FLUOROURACIL
     Indication: METASTASES TO EYE
  4. 5-FLUOROURACIL                     /00098801/ [Concomitant]
     Active Substance: FLUOROURACIL
     Indication: COLORECTAL CANCER METASTATIC
     Dosage: FOLFOX, 1/TWO WEEKS
     Route: 042
     Dates: start: 201012
  5. LEUCOVORIN                         /00566701/ [Concomitant]
     Active Substance: LEUCOVORIN
     Indication: COLORECTAL CANCER METASTATIC
     Dosage: FOLFOX, 1/TWO WEEKS
     Route: 042
     Dates: start: 201012
  6. ELOXATIN [Suspect]
     Active Substance: OXALIPLATIN
     Indication: METASTASES TO EYE
  7. AVASTIN [Concomitant]
     Active Substance: BEVACIZUMAB
     Indication: METASTASES TO EYE
  8. LEUCOVORIN                         /00566701/ [Concomitant]
     Active Substance: LEUCOVORIN
     Indication: METASTASES TO EYE

REACTIONS (1)
  - Hypersensitivity [Unknown]
